FAERS Safety Report 19593785 (Version 1)
Quarter: 2021Q3

REPORT INFORMATION
  Report Type: Spontaneous
  Country: US (occurrence: US)
  Receive Date: 20210722
  Receipt Date: 20210722
  Transmission Date: 20211014
  Serious: No
  Sender: FDA-Public Use
  Company Number: US-DRREDDYS-SPO/USA/21/0137813

PATIENT
  Sex: Female

DRUGS (1)
  1. NUPERCAINAL [Suspect]
     Active Substance: DIBUCAINE
     Indication: SKIN FISSURES

REACTIONS (1)
  - Product use in unapproved indication [Unknown]
